FAERS Safety Report 6399586-X (Version None)
Quarter: 2009Q4

REPORT INFORMATION
  Report Type: 
  Country: None (occurrence: None)
  Receive Date: 20091014
  Receipt Date: 20090929
  Transmission Date: 20100525
  Serious: Yes (Other)
  Sender: FDA-Public Use
  Company Number: US-JNJFOC-20091002391

PATIENT
  Age: 4 Month
  Sex: Female

DRUGS (5)
  1. TYLENOL (CAPLET) [Suspect]
     Route: 048
  2. TYLENOL (CAPLET) [Suspect]
     Indication: PYREXIA
     Dosage: 80 MG EVERY 4 TO 6 HOURS AS NEEDED
     Route: 048
  3. TYLENOL (CAPLET) [Suspect]
     Route: 048
  4. TYLENOL (CAPLET) [Suspect]
     Indication: PYREXIA
     Dosage: 80 MG EVERY 4 TO 6 HOURS AS NEEDED
     Route: 048
  5. CHILDREN'S TYLENOL PLUS FLU BUBBLEGUM [Suspect]
     Indication: INFLUENZA
     Dosage: 2.5 ML DAILY AS NECESSARY
     Route: 048

REACTIONS (3)
  - LUNG INFECTION [None]
  - TRANSMISSION OF AN INFECTIOUS AGENT VIA A MEDICINAL PRODUCT [None]
  - WRONG DRUG ADMINISTERED [None]
